FAERS Safety Report 17225549 (Version 1)
Quarter: 2020Q1

REPORT INFORMATION
  Report Type: Spontaneous
  Country: US (occurrence: US)
  Receive Date: 20200102
  Receipt Date: 20200102
  Transmission Date: 20200409
  Serious: Yes (Hospitalization)
  Sender: FDA-Public Use
  Company Number: US-VIFOR (INTERNATIONAL) INC.-VIT-2019-17417

PATIENT
  Sex: Male

DRUGS (16)
  1. FUROSEMIDE. [Concomitant]
     Active Substance: FUROSEMIDE
  2. CLONIDINE. [Concomitant]
     Active Substance: CLONIDINE
  3. FLUTICASONE. [Concomitant]
     Active Substance: FLUTICASONE
  4. PANTOPRAZOLE [Concomitant]
     Active Substance: PANTOPRAZOLE
  5. VELTASSA [Suspect]
     Active Substance: PATIROMER
     Indication: HYPERKALAEMIA
     Route: 048
     Dates: start: 20191127, end: 2019
  6. GENTAMICIN. [Concomitant]
     Active Substance: GENTAMICIN
  7. AMLODIPINE [Concomitant]
     Active Substance: AMLODIPINE BESYLATE
  8. HYDRALAZINE [Concomitant]
     Active Substance: HYDRALAZINE HYDROCHLORIDE
  9. NIFEDIPINE. [Concomitant]
     Active Substance: NIFEDIPINE
  10. CARVEDILOL. [Concomitant]
     Active Substance: CARVEDILOL
  11. LEVEMIR [Concomitant]
     Active Substance: INSULIN DETEMIR
  12. SEVELAMER [Concomitant]
     Active Substance: SEVELAMER
  13. ALPRAZOLAM. [Concomitant]
     Active Substance: ALPRAZOLAM
  14. ATORVASTATIN [Concomitant]
     Active Substance: ATORVASTATIN
  15. BASAGLAR [Concomitant]
     Active Substance: INSULIN GLARGINE
  16. SODIUM BICARB [Concomitant]
     Active Substance: SODIUM BICARBONATE

REACTIONS (1)
  - Hypertension [Unknown]

NARRATIVE: CASE EVENT DATE: 2019
